FAERS Safety Report 7771790-5 (Version None)
Quarter: 2011Q3

REPORT INFORMATION
  Report Type: 
  Country: None (occurrence: None)
  Receive Date: 20110922
  Receipt Date: 20110912
  Transmission Date: 20111222
  Serious: Yes (Hospitalization)
  Sender: FDA-Public Use
  Company Number: US-ELI_LILLY_AND_COMPANY-US201109003524

PATIENT
  Sex: Female

DRUGS (4)
  1. HUMALOG [Suspect]
     Indication: DIABETES MELLITUS
     Dosage: UNK, PRN
     Dates: start: 20110701
  2. NOVOLIN N [Concomitant]
     Dosage: 15 U, EACH MORNING
  3. NOVOLIN N [Concomitant]
     Dosage: 10 U, EACH EVENING
  4. ANTIHYPERTENSIVES [Concomitant]
     Indication: HYPERTENSION
     Dosage: UNK

REACTIONS (4)
  - CLOSTRIDIAL INFECTION [None]
  - APATHY [None]
  - BLOOD GLUCOSE INCREASED [None]
  - HEART RATE DECREASED [None]
